FAERS Safety Report 4457613-0 (Version None)
Quarter: 2004Q3

REPORT INFORMATION
  Report Type: 
  Country: None (occurrence: None)
  Receive Date: 20040922
  Receipt Date: 20040917
  Transmission Date: 20050211
  Serious: Yes (Death, Congenital Anomaly)
  Sender: FDA-Public Use
  Company Number: 2004SE04506

PATIENT
  Age: 1 Day
  Weight: 1 kg

DRUGS (5)
  1. BLOPRESS [Suspect]
     Indication: GLOMERULONEPHRITIS CHRONIC
     Dosage: 2 MG QD TPL
     Route: 061
     Dates: start: 20030902, end: 20031007
  2. BLOPRESS [Suspect]
     Indication: GLOMERULONEPHRITIS CHRONIC
     Dosage: 2 MG BID TPL
     Route: 061
     Dates: start: 20031008, end: 20031103
  3. BLOPRESS [Suspect]
     Indication: GLOMERULONEPHRITIS CHRONIC
     Dosage: 3 MG BID TPL
     Route: 061
     Dates: start: 20031104, end: 20040804
  4. FERROUS CITRATE [Concomitant]
  5. DIPYRIDAMOLE [Concomitant]

REACTIONS (18)
  - CYANOSIS NEONATAL [None]
  - DRUG EXPOSURE DURING PREGNANCY [None]
  - HYPERCAPNIA [None]
  - HYPOTONIA [None]
  - HYPOTONIA NEONATAL [None]
  - IMMATURE RESPIRATORY SYSTEM [None]
  - LIMB MALFORMATION [None]
  - NEONATAL DISORDER [None]
  - NEONATAL RESPIRATORY FAILURE [None]
  - OLIGOHYDRAMNIOS [None]
  - OXYGEN SATURATION DECREASED [None]
  - PERSISTENT FOETAL CIRCULATION [None]
  - PNEUMOTHORAX [None]
  - PULMONARY HYPOPLASIA [None]
  - RESPIRATORY ACIDOSIS [None]
  - RESPIRATORY DISORDER NEONATAL [None]
  - SKULL MALFORMATION [None]
  - SMALL FOR DATES BABY [None]
